FAERS Safety Report 8077417-X (Version None)
Quarter: 2012Q1

REPORT INFORMATION
  Report Type: 
  Country: None (occurrence: None)
  Receive Date: 20120127
  Receipt Date: 20120126
  Transmission Date: 20120608
  Serious: Yes (Hospitalization)
  Sender: FDA-Public Use
  Company Number: DE-BAYER-2012-008551

PATIENT
  Age: 74 Year
  Sex: Male

DRUGS (4)
  1. FLUVASTATIN [Concomitant]
     Indication: HYPERCHOLESTEROLAEMIA
     Dosage: 40 MG, UNK
  2. MARCUMAR [Concomitant]
     Indication: THROMBOSIS PROPHYLAXIS
  3. ANTIHYPERTENSIVES [Concomitant]
     Indication: HYPERTENSION
  4. LEVITRA [Suspect]
     Indication: ERECTILE DYSFUNCTION
     Dosage: 10 MG, PRN
     Route: 048
     Dates: start: 20020101

REACTIONS (1)
  - ATRIAL FIBRILLATION [None]
